FAERS Safety Report 26111324 (Version 1)
Quarter: 2025Q4

REPORT INFORMATION
  Report Type: Spontaneous
  Country: JP (occurrence: JP)
  Receive Date: 20251202
  Receipt Date: 20251202
  Transmission Date: 20260118
  Serious: Yes (Other)
  Sender: RECORDATI
  Company Number: JP-ORPHANEU-2025008567

PATIENT
  Age: 38 Year
  Sex: Female

DRUGS (5)
  1. PASIREOTIDE [Suspect]
     Active Substance: PASIREOTIDE
     Indication: Pituitary-dependent Cushing^s syndrome
     Dosage: 10 MG EVERY 3 WEEKS
  2. PASIREOTIDE [Suspect]
     Active Substance: PASIREOTIDE
     Dosage: 20 MG EVERY 4 WEEKS
  3. METYRAPONE [Concomitant]
     Active Substance: METYRAPONE
     Indication: Pituitary-dependent Cushing^s syndrome
     Dosage: 1000 MILLIGRAM, DAILY
  4. HYDROCORTISONE [Concomitant]
     Active Substance: HYDROCORTISONE
     Indication: Product used for unknown indication
     Dosage: 10 MG/DAY
  5. HYDROCORTISONE [Concomitant]
     Active Substance: HYDROCORTISONE
     Dosage: UNK (GIVEN BEFORE DELIVERY AS A STEROID COVER)

REACTIONS (5)
  - Severe acute respiratory syndrome [Unknown]
  - COVID-19 [Unknown]
  - Cortisol free urine increased [Recovered/Resolved]
  - Hyperglycaemia [Unknown]
  - Maternal exposure during pregnancy [Recovered/Resolved]
